FAERS Safety Report 17136620 (Version 3)
Quarter: 2019Q4

REPORT INFORMATION
  Report Type: Report from Study
  Country: BR (occurrence: BR)
  Receive Date: 20191210
  Receipt Date: 20191220
  Transmission Date: 20200122
  Serious: Yes (Death, Hospitalization, Other)
  Sender: FDA-Public Use
  Company Number: NVSC2019BR063797

PATIENT
  Age: 83 Year
  Sex: Female
  Weight: 48 kg

DRUGS (3)
  1. EXODUS [Concomitant]
     Indication: DEPRESSION
     Dosage: 1 DF, QD
     Route: 048
  2. EXELON PATCH [Suspect]
     Active Substance: RIVASTIGMINE
     Indication: DEMENTIA ALZHEIMER^S TYPE
     Dosage: 1 DF, QD
     Route: 062
  3. DEPAKENE [Concomitant]
     Active Substance: VALPROIC ACID
     Indication: SEIZURE
     Dosage: 5 ML, Q12H
     Route: 048
     Dates: start: 200603

REACTIONS (4)
  - Intestinal obstruction [Fatal]
  - Sepsis [Fatal]
  - Pneumonia [Fatal]
  - Renal failure [Fatal]

NARRATIVE: CASE EVENT DATE: 20191123
